FAERS Safety Report 8987429 (Version 1)
Quarter: 2012Q4

REPORT INFORMATION
  Report Type: 
  Country: US (occurrence: US)
  Receive Date: 20121227
  Receipt Date: 20121227
  Transmission Date: 20130627
  Serious: Yes (Hospitalization, Other)
  Sender: FDA-Public Use
  Company Number: US-ABBOTT-12P-163-1024993-00

PATIENT
  Sex: Male
  Weight: 59.02 kg

DRUGS (2)
  1. HUMIRA [Suspect]
     Indication: RHEUMATOID ARTHRITIS
     Dates: start: 2002, end: 201210
  2. HUMIRA [Suspect]
     Dates: start: 201212

REACTIONS (5)
  - Benign oesophageal neoplasm [Unknown]
  - Oesophageal carcinoma [Recovering/Resolving]
  - Pneumonia [Recovered/Resolved]
  - Sepsis [Recovered/Resolved]
  - Gastric infection [Recovered/Resolved]
